FAERS Safety Report 8186800-3 (Version None)
Quarter: 2012Q1

REPORT INFORMATION
  Report Type: 
  Country: None (occurrence: None)
  Receive Date: 20120306
  Receipt Date: 20120214
  Transmission Date: 20120608
  Serious: Yes (Disabling, Other)
  Sender: FDA-Public Use
  Company Number: EC-MPIJNJ-2011-05858

PATIENT

DRUGS (3)
  1. VELCADE [Suspect]
     Indication: PRODUCT USED FOR UNKNOWN INDICATION
     Dosage: 1.3 MG/M2, UNK
     Route: 065
  2. DEXAMETHASONE [Concomitant]
  3. LENALIDOMIDE [Concomitant]
     Dosage: 10 MG, CYCLIC

REACTIONS (2)
  - HYPOAESTHESIA [None]
  - POLYNEUROPATHY [None]
